FAERS Safety Report 22323446 (Version 2)
Quarter: 2024Q4

REPORT INFORMATION
  Report Type: Spontaneous
  Country: US (occurrence: US)
  Receive Date: 20230516
  Receipt Date: 20241017
  Transmission Date: 20250115
  Serious: No
  Sender: SANOFI AVENTIS
  Company Number: US-SA-SAC20230515000438

PATIENT
  Sex: Male
  Weight: 93.89 kg

DRUGS (2)
  1. DUPIXENT [Suspect]
     Active Substance: DUPILUMAB
     Indication: Dermatitis atopic
     Dosage: 600 MG, 1X
     Route: 058
  2. DUPIXENT [Suspect]
     Active Substance: DUPILUMAB
     Dosage: 300 MG, QOW
     Route: 058
     Dates: end: 202402

REACTIONS (4)
  - Cardiac disorder [Unknown]
  - Ear infection [Unknown]
  - Sinus disorder [Unknown]
  - Surgery [Unknown]

NARRATIVE: CASE EVENT DATE: 20240201
